FAERS Safety Report 13103679 (Version 1)
Quarter: 2017Q1

REPORT INFORMATION
  Report Type: Spontaneous
  Country: GB (occurrence: GB)
  Receive Date: 20170111
  Receipt Date: 20170111
  Transmission Date: 20170428
  Serious: Yes (Other)
  Sender: FDA-Public Use
  Company Number: GB-ACCORD-047270

PATIENT
  Age: 43 Year
  Sex: Male
  Weight: 190.5 kg

DRUGS (1)
  1. ALLOPURINOL. [Suspect]
     Active Substance: ALLOPURINOL
     Indication: GOUT
     Route: 048
     Dates: start: 20161207, end: 20161222

REACTIONS (7)
  - Back pain [Unknown]
  - Arthralgia [Unknown]
  - Headache [Unknown]
  - Chest pain [Not Recovered/Not Resolved]
  - Dyspepsia [Unknown]
  - Malaise [Unknown]
  - Gastrooesophageal reflux disease [Unknown]

NARRATIVE: CASE EVENT DATE: 20161220
